FAERS Safety Report 6614303-3 (Version None)
Quarter: 2010Q1

REPORT INFORMATION
  Report Type: 
  Country: None (occurrence: None)
  Receive Date: 20100303
  Receipt Date: 20100303
  Transmission Date: 20100710
  Serious: Yes (Hospitalization)
  Sender: FDA-Public Use
  Company Number: None

PATIENT
  Age: 28 Year
  Sex: Male
  Weight: 172 kg

DRUGS (1)
  1. ISOVUE-370 [Suspect]
     Indication: NUCLEAR MAGNETIC RESONANCE IMAGING
     Dosage: 90ML ONCE IV BOLUS
     Route: 040
     Dates: start: 20100301, end: 20100301

REACTIONS (6)
  - CARDIO-RESPIRATORY ARREST [None]
  - CONTRAST MEDIA ALLERGY [None]
  - CONVULSION [None]
  - DYSPNOEA [None]
  - UNRESPONSIVE TO STIMULI [None]
  - VOMITING [None]
